FAERS Safety Report 15814916 (Version 1)
Quarter: 2019Q1

REPORT INFORMATION
  Report Type: Spontaneous
  Country: FR (occurrence: FR)
  Receive Date: 20190111
  Receipt Date: 20190111
  Transmission Date: 20190417
  Serious: Yes (Life-Threatening)
  Sender: FDA-Public Use
  Company Number: FR-ACCORD-101499

PATIENT
  Age: 61 Year
  Sex: Female
  Weight: 55 kg

DRUGS (9)
  1. CLOZAPINE. [Suspect]
     Active Substance: CLOZAPINE
     Indication: PSYCHOTIC DISORDER
     Route: 048
  2. NORMACOL [Concomitant]
     Active Substance: HERBALS\KARAYA GUM
     Route: 048
  3. TEMESTA [LORAZEPAM] [Suspect]
     Active Substance: LORAZEPAM
     Indication: ANXIETY
     Dosage: STRENGTH:1 MG
     Route: 048
  4. LANSOYL [Concomitant]
     Active Substance: MINERAL OIL
     Route: 048
  5. LOXAPAC [Suspect]
     Active Substance: LOXAPINE
     Indication: PSYCHOTIC DISORDER
     Route: 048
  6. THERALENE [Suspect]
     Active Substance: TRIMEPRAZINE
     Indication: SLEEP DISORDER
     Route: 048
  7. MICROPAKINE [Suspect]
     Active Substance: VALPROATE SODIUM
     Indication: PSYCHOTIC DISORDER
     Route: 048
  8. DUPHALAC [Concomitant]
     Active Substance: LACTULOSE
     Route: 048
  9. PARKINANE L P [Suspect]
     Active Substance: TRIHEXYPHENIDYL
     Indication: PYRAMIDAL TRACT SYNDROME
     Dosage: STRENGTH:5MG
     Route: 048

REACTIONS (2)
  - Pneumonia aspiration [Recovered/Resolved]
  - Choking [Recovered/Resolved]

NARRATIVE: CASE EVENT DATE: 20180224
